FAERS Safety Report 5603104-0 (Version None)
Quarter: 2008Q1

REPORT INFORMATION
  Report Type: 
  Country: None (occurrence: None)
  Receive Date: 20080125
  Receipt Date: 20080123
  Transmission Date: 20080703
  Serious: Yes (Death, Hospitalization)
  Sender: FDA-Public Use
  Company Number: IT-BRISTOL-MYERS SQUIBB COMPANY-14050330

PATIENT
  Age: 84 Year
  Sex: Male

DRUGS (4)
  1. COUMADIN [Suspect]
     Indication: ATRIAL FIBRILLATION
     Route: 048
     Dates: start: 20070101, end: 20071214
  2. ELOPRAM [Suspect]
     Route: 048
     Dates: start: 20070101, end: 20071214
  3. ADALAT [Concomitant]
     Indication: HYPERTENSION
  4. ACEQUIN [Concomitant]
     Indication: HYPERTENSION
     Dosage: FILM COATED TABS

REACTIONS (2)
  - DEATH [None]
  - SUBDURAL HAEMATOMA [None]
